FAERS Safety Report 8390913-0 (Version None)
Quarter: 2012Q2

REPORT INFORMATION
  Report Type: 
  Country: None (occurrence: None)
  Receive Date: 20120529
  Receipt Date: 20120522
  Transmission Date: 20120825
  Serious: Yes (Other)
  Sender: FDA-Public Use
  Company Number: PHEH2012US010656

PATIENT
  Sex: Male

DRUGS (2)
  1. DIOVAN [Suspect]
     Dosage: UNK UKN, UNK
  2. BYSTOLIC [Concomitant]
     Dosage: UNK UKN, UNK

REACTIONS (4)
  - FALL [None]
  - TREMOR [None]
  - SOMNOLENCE [None]
  - HIP FRACTURE [None]
